FAERS Safety Report 12635213 (Version 1)
Quarter: 2016Q3

REPORT INFORMATION
  Report Type: Spontaneous
  Country: US (occurrence: US)
  Receive Date: 20160808
  Receipt Date: 20160808
  Transmission Date: 20161109
  Serious: Yes (Hospitalization, Other)
  Sender: FDA-Public Use
  Company Number: US-PRESTIGE BRANDS -1056069

PATIENT
  Age: 62 Year
  Sex: Female

DRUGS (2)
  1. GOODYS [Suspect]
     Active Substance: ACETAMINOPHEN\ASPIRIN\CAFFEINE
     Indication: HEADACHE
     Route: 048
     Dates: start: 2006, end: 201606
  2. OMEPRAZOLE. [Suspect]
     Active Substance: OMEPRAZOLE
     Route: 048

REACTIONS (20)
  - Swelling [Recovered/Resolved]
  - Adverse reaction [Recovered/Resolved]
  - Wheezing [Recovered/Resolved]
  - Dyspnoea [Recovered/Resolved]
  - Poisoning [Recovered/Resolved]
  - Dysarthria [Recovered/Resolved]
  - Renal failure [None]
  - Loss of consciousness [Recovered/Resolved]
  - Tremor [Recovered/Resolved]
  - Back pain [Recovered/Resolved]
  - Amnesia [Recovered/Resolved]
  - Dialysis [Recovered/Resolved]
  - Headache [Recovered/Resolved]
  - Abdominal pain upper [Recovered/Resolved]
  - Weight increased [Recovered/Resolved]
  - Acute hepatic failure [Recovered/Resolved]
  - Malaise [Not Recovered/Not Resolved]
  - Oxygen saturation decreased [Recovered/Resolved]
  - Drug abuse [Recovered/Resolved]
  - Hypoacusis [Recovered/Resolved]

NARRATIVE: CASE EVENT DATE: 20160611
